FAERS Safety Report 4290598-9 (Version None)
Quarter: 2004Q1

REPORT INFORMATION
  Report Type: 
  Country: None (occurrence: None)
  Receive Date: 20040209
  Receipt Date: 20040123
  Transmission Date: 20041129
  Serious: Yes (Hospitalization)
  Sender: FDA-Public Use
  Company Number: 2004PK00167

PATIENT
  Age: 47 Year
  Sex: Female

DRUGS (3)
  1. NOLVADEX [Suspect]
     Indication: BREAST CANCER
     Dosage: 20 MG DAILY PO
     Route: 048
     Dates: start: 20010109, end: 20020417
  2. ZOLADEX [Suspect]
     Indication: BREAST CANCER
     Dosage: 3.6 MG MONTH SQ
     Dates: start: 20010101
  3. ZOLEDRONATE [Suspect]
     Indication: BREAST CANCER
     Dosage: 4 MG IV
     Route: 042
     Dates: start: 20010115, end: 20011225

REACTIONS (4)
  - ADENOMYOSIS [None]
  - HAEMATOMA INFECTION [None]
  - OVARIAN CYST [None]
  - SALPINGITIS [None]
